FAERS Safety Report 12602549 (Version 1)
Quarter: 2016Q3

REPORT INFORMATION
  Report Type: Spontaneous
  Country: US (occurrence: US)
  Receive Date: 20160728
  Receipt Date: 20160728
  Transmission Date: 20161109
  Serious: No
  Sender: FDA-Public Use
  Company Number: US-BAUSCH-BL-2015-021560

PATIENT
  Age: 30 Year
  Sex: Male
  Weight: 99.88 kg

DRUGS (1)
  1. OPCON-A [Suspect]
     Active Substance: NAPHAZOLINE HYDROCHLORIDE\PHENIRAMINE MALEATE
     Indication: HYPERSENSITIVITY
     Dosage: USED ONE TIME
     Route: 047
     Dates: start: 20150420, end: 20150420

REACTIONS (5)
  - Corneal abrasion [Recovered/Resolved]
  - Eye swelling [Recovered/Resolved]
  - Photosensitivity reaction [Recovered/Resolved]
  - Eye pain [Recovered/Resolved]
  - Eye irritation [Recovered/Resolved]

NARRATIVE: CASE EVENT DATE: 20150420
